FAERS Safety Report 8246864-5 (Version None)
Quarter: 2012Q1

REPORT INFORMATION
  Report Type: 
  Country: None (occurrence: None)
  Receive Date: 20120327
  Receipt Date: 20120312
  Transmission Date: 20120608
  Serious: Yes (Hospitalization)
  Sender: FDA-Public Use
  Company Number: 201201027

PATIENT
  Age: 81 Year
  Sex: Male

DRUGS (1)
  1. XIAFLEX [Suspect]
     Indication: DUPUYTREN'S CONTRACTURE
     Dosage: 0.9 MG, INTRALESIONAL
     Route: 026
     Dates: start: 20111124, end: 20111124

REACTIONS (2)
  - SKIN GRAFT [None]
  - SKIN LESION [None]
